FAERS Safety Report 6825514-6 (Version None)
Quarter: 2010Q3

REPORT INFORMATION
  Report Type: 
  Country: None (occurrence: None)
  Receive Date: 20100708
  Receipt Date: 20071113
  Transmission Date: 20110219
  Serious: No
  Sender: FDA-Public Use
  Company Number: US-PFIZER INC-2006102781

PATIENT
  Sex: Female
  Weight: 66.22 kg

DRUGS (5)
  1. CHANTIX [Suspect]
     Indication: EX-TOBACCO USER
     Dates: start: 20060817
  2. FORADIL [Concomitant]
  3. SPIRIVA [Concomitant]
  4. LEVOTHYROXINE SODIUM [Concomitant]
  5. WELLBUTRIN [Concomitant]

REACTIONS (3)
  - DYSGEUSIA [None]
  - NAUSEA [None]
  - THERMAL BURN [None]
